FAERS Safety Report 6166103-9 (Version None)
Quarter: 2009Q2

REPORT INFORMATION
  Report Type: 
  Country: None (occurrence: None)
  Receive Date: 20090424
  Receipt Date: 20090420
  Transmission Date: 20091009
  Serious: Yes (Hospitalization)
  Sender: FDA-Public Use
  Company Number: JP-ELI_LILLY_AND_COMPANY-JP200904001871

PATIENT
  Sex: Male
  Weight: 65 kg

DRUGS (13)
  1. GEMZAR [Suspect]
     Indication: BILE DUCT CANCER RECURRENT
     Dosage: 1000 MG, OTHER
     Route: 042
     Dates: start: 20090319, end: 20090319
  2. EXCELASE [Concomitant]
     Indication: PROPHYLAXIS
     Dosage: 1 D/F, 3/D
     Route: 048
     Dates: start: 20080201
  3. MAGLAX [Concomitant]
     Indication: LAXATIVE SUPPORTIVE CARE
     Dosage: 2 D/F, 2/D
     Route: 048
  4. GASTER D [Concomitant]
     Indication: PROPHYLAXIS AGAINST GASTROINTESTINAL ULCER
     Dosage: 1 D/F, 2/D
     Route: 048
  5. GASMOTIN [Concomitant]
     Indication: GASTROINTESTINAL DISORDER THERAPY
     Dosage: 1 D/F, 3/D
     Route: 048
  6. BIO THREE /01068501/ [Concomitant]
     Indication: GASTROINTESTINAL DISORDER THERAPY
     Dosage: 1 D/F, 3/D
     Route: 048
     Dates: start: 20080201
  7. PANVITAN /00466101/ [Concomitant]
     Indication: MALABSORPTION
     Dosage: 2 G, DAILY (1/D)
     Route: 048
  8. AMOBAN [Concomitant]
     Indication: INSOMNIA
     Dosage: 7.5 MG, DAILY (1/D)
     Route: 048
  9. OXYNORM [Concomitant]
     Indication: CANCER PAIN
     Dosage: 0.5 G, DAILY (1/D)
     Route: 048
     Dates: start: 20090313
  10. NOVAMIN [Concomitant]
     Indication: CANCER PAIN
     Dosage: 1 D/F, DAILY (1/D)
     Route: 048
     Dates: start: 20090313
  11. LOXOPROFEN SODIUM [Concomitant]
     Indication: CANCER PAIN
     Dosage: 1 D/F, 3/D
     Route: 048
     Dates: start: 20090313
  12. HUMULIN 70/30 [Concomitant]
     Indication: DIABETES MELLITUS
     Dosage: 6 D/F, DAILY (1/D)
     Route: 058
  13. OXYCONTIN [Concomitant]
     Indication: CANCER PAIN
     Dosage: 5 MG, 2/D
     Route: 048

REACTIONS (2)
  - HEPATIC ENCEPHALOPATHY [None]
  - HEPATIC FAILURE [None]
